FAERS Safety Report 5371358-4 (Version None)
Quarter: 2007Q2

REPORT INFORMATION
  Report Type: 
  Country: None (occurrence: None)
  Receive Date: 20070615
  Receipt Date: 20060914
  Transmission Date: 20071010
  Serious: Yes (Other)
  Sender: FDA-Public Use
  Company Number: 200617865US

PATIENT
  Age: 48 Year
  Sex: Male
  Weight: 47.1741 kg

DRUGS (6)
  1. LANTUS [Suspect]
     Indication: DIABETES MELLITUS INSULIN-DEPENDENT
     Dosage: 16 U HS
     Dates: start: 20060101
  2. OPTICLIK [Suspect]
     Dates: start: 20060101
  3. HUMALOG [Suspect]
     Dates: start: 20060101
  4. ATORVASTATIN CALCIUM (LIPITOR) [Concomitant]
  5. ENALAPRIL MALEATE [Concomitant]
  6. METOPROLOL SUCCINATE (TOPROL) [Concomitant]

REACTIONS (5)
  - APHASIA [None]
  - BLOOD GLUCOSE INCREASED [None]
  - HYPOGLYCAEMIC COMA [None]
  - MUSCLE RIGIDITY [None]
  - MYDRIASIS [None]
